FAERS Safety Report 17665072 (Version 1)
Quarter: 2020Q2

REPORT INFORMATION
  Report Type: Spontaneous
  Country: US (occurrence: US)
  Receive Date: 20200413
  Receipt Date: 20200413
  Transmission Date: 20200713
  Serious: No
  Sender: FDA-Public Use
  Company Number: None

PATIENT
  Age: 56 Year
  Sex: Female
  Weight: 60.3 kg

DRUGS (23)
  1. ZYRTEC, 10MG, ORAL [Concomitant]
  2. BENADRYL 25MG, ORAL [Concomitant]
  3. SYMBICORT 160 - 4.5 MG, ORAL [Concomitant]
  4. CALCIUM D3, 600 - 200MG, ORAL [Concomitant]
  5. CIPROFLOXACIN 0.2 %, OPTHA [Concomitant]
  6. IBRANCE [Suspect]
     Active Substance: PALBOCICLIB
     Indication: BONE CANCER
     Route: 048
     Dates: start: 20200102, end: 20200413
  7. NORCO 10 - 325MG, ORAL [Concomitant]
  8. LYRICA 200MG, ORAL [Concomitant]
  9. PROCHLORPERAZINE 10MG, ORAL [Concomitant]
  10. LEVOTHYROXINE, 100 MCG, ORAL [Concomitant]
  11. PRILOSEC 40MG, ORAL [Concomitant]
  12. MAALOX MAX 400 - 400 - 40/ 5ML, ORAL [Concomitant]
  13. CYCLOBENZAPRINE 10MG, ORAL [Concomitant]
  14. FLONASE ALLERGY, 50 MCG/ACUTATION, INHALER [Concomitant]
  15. INCRUSE ELLIPTA, 62.5 MCG/ACTUATION, INHALER [Concomitant]
  16. MAGACE ES 625MG/ 5ML, ORAL [Concomitant]
  17. TAMIFLU 45MG ,ORAL [Concomitant]
  18. VITAMIN D3, 5000 U, ORAL [Concomitant]
  19. HYDROCODONE - ACETAMINOPHEN, 10- 325MG, ORAL [Concomitant]
  20. FLAXSEED OIL 1300 MG, ORAL [Concomitant]
  21. IBRANCE [Suspect]
     Active Substance: PALBOCICLIB
     Indication: BREAST CANCER
     Route: 048
     Dates: start: 20200102, end: 20200413
  22. LIDOCAINE 1%, IJ [Concomitant]
  23. NYSTATIN 500000 U, ORAL [Concomitant]

REACTIONS (1)
  - Disease progression [None]

NARRATIVE: CASE EVENT DATE: 20200413
